FAERS Safety Report 11142564 (Version 1)
Quarter: 2015Q2

REPORT INFORMATION
  Report Type: Spontaneous
  Country: DE (occurrence: FR)
  Receive Date: 20150527
  Receipt Date: 20150527
  Transmission Date: 20150821
  Serious: Yes (Death, Hospitalization)
  Sender: FDA-Public Use
  Company Number: DE-ACTELION-A-NJ2015-118556

PATIENT
  Age: 74 Year
  Sex: Female

DRUGS (13)
  1. LASILIX [Concomitant]
     Active Substance: FUROSEMIDE
  2. ALDACTONE [Concomitant]
     Active Substance: SPIRONOLACTONE
  3. PREVISCAN [Concomitant]
     Active Substance: FLUINDIONE
  4. LEVOTHYROX [Concomitant]
     Active Substance: LEVOTHYROXINE
  5. OFLOXACIN. [Concomitant]
     Active Substance: OFLOXACIN
     Dosage: UNK
     Dates: end: 20120130
  6. EZETROL [Concomitant]
     Active Substance: EZETIMIBE
  7. N-ACETYLCYSTEINE [Concomitant]
     Active Substance: ACETYLCYSTEINE
  8. SOLU-MEDROL [Concomitant]
     Active Substance: METHYLPREDNISOLONE SODIUM SUCCINATE
     Dosage: UNK
     Dates: start: 20120123
  9. CEFTRIAXONE. [Concomitant]
     Active Substance: CEFTRIAXONE
     Dosage: UNK
     Dates: start: 20120126, end: 20120128
  10. VENTAVIS [Suspect]
     Active Substance: ILOPROST
     Indication: PRODUCT USED FOR UNKNOWN INDICATION
     Dosage: UNK
     Route: 055
     Dates: end: 20120130
  11. TRINITRINE [Concomitant]
     Active Substance: NITROGLYCERIN
  12. BACTRIM [Concomitant]
     Active Substance: SULFAMETHOXAZOLE\TRIMETHOPRIM
     Dosage: UNK
     Dates: start: 20120126, end: 20120128
  13. INEXIUM [Concomitant]
     Active Substance: ESOMEPRAZOLE

REACTIONS (2)
  - Pneumomediastinum [Fatal]
  - Subcutaneous emphysema [Fatal]

NARRATIVE: CASE EVENT DATE: 20120130
